FAERS Safety Report 16043105 (Version 1)
Quarter: 2019Q1

REPORT INFORMATION
  Report Type: Spontaneous
  Country: US (occurrence: US)
  Receive Date: 20190306
  Receipt Date: 20190306
  Transmission Date: 20190418
  Serious: Yes (Other)
  Sender: FDA-Public Use
  Company Number: US-AVADEL LEGACY PHARMACEUTICALS, LLC-2019AVA00068

PATIENT
  Sex: Female

DRUGS (1)
  1. NOCTIVA [Suspect]
     Active Substance: DESMOPRESSIN ACETATE
     Dosage: 1.66 ?G IN EITHER THE LEFT OR RIGHT NOSTRIL, 1X/DAY APPROXIMATELY 30 MINUTES BEFORE BED
     Route: 045
     Dates: start: 201810

REACTIONS (6)
  - Bronchial irritation [Recovering/Resolving]
  - Back pain [Recovering/Resolving]
  - Pharyngitis streptococcal [Recovering/Resolving]
  - Eye pain [Recovered/Resolved]
  - Asthma [Recovering/Resolving]
  - Nasal inflammation [Recovering/Resolving]
